FAERS Safety Report 6521345-5 (Version None)
Quarter: 2009Q4

REPORT INFORMATION
  Report Type: 
  Country: None (occurrence: None)
  Receive Date: 20091230
  Receipt Date: 20091217
  Transmission Date: 20100525
  Serious: Yes (Hospitalization)
  Sender: FDA-Public Use
  Company Number: US-JNJFOC-20090707301

PATIENT
  Sex: Male
  Weight: 9.8 kg

DRUGS (12)
  1. INFLIXIMAB [Suspect]
     Indication: CROHN'S DISEASE
     Route: 042
  2. INFLIXIMAB [Suspect]
     Indication: INFLAMMATORY BOWEL DISEASE
     Route: 042
  3. MESALAZINE (5-ASA) [Concomitant]
     Route: 048
  4. AZATHIOPRINE [Concomitant]
  5. FOLIC ACID [Concomitant]
  6. MULTI-VITAMINS [Concomitant]
  7. FERROUS SULFATE TAB [Concomitant]
  8. MIRALAX [Concomitant]
  9. TYLENOL (CAPLET) [Concomitant]
  10. PREDNISONE [Concomitant]
  11. PROBIOTICS [Concomitant]
  12. MOTRIN [Concomitant]

REACTIONS (6)
  - ANAEMIA [None]
  - ARTHRITIS ENTEROPATHIC [None]
  - MOBILITY DECREASED [None]
  - RASH MACULO-PAPULAR [None]
  - RELAPSING FEVER [None]
  - VIRAL INFECTION [None]
